FAERS Safety Report 5801666-1 (Version None)
Quarter: 2008Q3

REPORT INFORMATION
  Report Type: 
  Country: None (occurrence: None)
  Receive Date: 20080707
  Receipt Date: 20080624
  Transmission Date: 20090109
  Serious: Yes (Death, Hospitalization)
  Sender: FDA-Public Use
  Company Number: B0510374A

PATIENT
  Sex: Male
  Weight: 95 kg

DRUGS (7)
  1. AVANDIA [Suspect]
     Indication: DRUG USE FOR UNKNOWN INDICATION
     Route: 048
     Dates: start: 20031101, end: 20070201
  2. NOVOLOG MIX 70/30 [Concomitant]
     Dates: start: 20060531
  3. ESOMEPRAZOLE MAGNESIUM [Concomitant]
  4. NEXIUM [Concomitant]
     Dosage: 20MG PER DAY
     Route: 048
  5. UNKNOWN DRUG [Concomitant]
     Dosage: 450MG TWICE PER DAY
     Route: 048
  6. COMBIVENT [Concomitant]
     Route: 065
  7. PREDNISON [Concomitant]
     Dosage: 20MG PER DAY
     Route: 065

REACTIONS (15)
  - ASCITES [None]
  - BLOOD ALBUMIN DECREASED [None]
  - BLOOD BILIRUBIN INCREASED [None]
  - BLOOD GLUCOSE INCREASED [None]
  - BLOOD LACTATE DEHYDROGENASE INCREASED [None]
  - C-REACTIVE PROTEIN INCREASED [None]
  - GAMMA-GLUTAMYLTRANSFERASE INCREASED [None]
  - GASTROINTESTINAL DISORDER [None]
  - INTESTINAL OPERATION [None]
  - LIVER DISORDER [None]
  - OEDEMA [None]
  - OESOPHAGEAL VARICES HAEMORRHAGE [None]
  - PROCEDURAL COMPLICATION [None]
  - RED BLOOD CELL SEDIMENTATION RATE INCREASED [None]
  - WEIGHT INCREASED [None]
